FAERS Safety Report 7015962-6 (Version None)
Quarter: 2010Q3

REPORT INFORMATION
  Report Type: 
  Country: None (occurrence: None)
  Receive Date: 20100927
  Receipt Date: 20100419
  Transmission Date: 20110219
  Serious: No
  Sender: FDA-Public Use
  Company Number: US-ASTRAZENECA-2010SE17352

PATIENT
  Sex: Female
  Weight: 54.4 kg

DRUGS (6)
  1. ARIMIDEX [Suspect]
     Indication: BREAST CANCER
     Route: 048
     Dates: start: 20091101, end: 20100329
  2. LESCOL [Concomitant]
  3. GLIPIZIDE [Concomitant]
  4. COZAAR [Concomitant]
  5. JANUVIA [Concomitant]
  6. FOSAMAX [Concomitant]

REACTIONS (1)
  - TUMOUR MARKER INCREASED [None]
